FAERS Safety Report 10276208 (Version 3)
Quarter: 2014Q4

REPORT INFORMATION
  Report Type: Spontaneous
  Country: US (occurrence: US)
  Receive Date: 20140703
  Receipt Date: 20141231
  Transmission Date: 20150528
  Serious: Yes (Hospitalization, Other)
  Sender: FDA-Public Use
  Company Number: US-PFIZER INC-2014137347

PATIENT
  Age: 75 Year
  Sex: Male

DRUGS (6)
  1. TRAZODONE [Suspect]
     Active Substance: TRAZODONE HYDROCHLORIDE
     Indication: DEMENTIA ALZHEIMER^S TYPE
     Dosage: 100 MG NIGHTLY AT BEDTIME
     Route: 065
  2. OLANZAPINE. [Suspect]
     Active Substance: OLANZAPINE
     Indication: DEMENTIA ALZHEIMER^S TYPE
     Dosage: 15 MG NIGHTLY AT BED TIME
     Route: 065
  3. AMITRIPTYLINE [Suspect]
     Active Substance: AMITRIPTYLINE
     Indication: DEMENTIA ALZHEIMER^S TYPE
     Dosage: 20 MG ONCE IN THE MORNING AND 30 MG NIGHTLY AT BEDTIME
     Route: 065
  4. TOPIRAMATE. [Suspect]
     Active Substance: TOPIRAMATE
     Indication: DEMENTIA ALZHEIMER^S TYPE
     Dosage: 100 MG, 2X/DAY
     Route: 065
  5. SERTRALINE HCL [Suspect]
     Active Substance: SERTRALINE HYDROCHLORIDE
     Indication: DEMENTIA ALZHEIMER^S TYPE
     Dosage: 50 MG ONCE IN THE MORNING
     Route: 065
  6. CHLORDIAZEPOXIDE [Suspect]
     Active Substance: CHLORDIAZEPOXIDE
     Indication: DEMENTIA ALZHEIMER^S TYPE
     Dosage: 50 MG ONCE IN THE MORNING AND 75 MG NIGHTLY AT BEDTIME
     Route: 065

REACTIONS (3)
  - Delusion of replacement [Recovered/Resolved]
  - Aggression [Recovered/Resolved]
  - Agitation [Recovered/Resolved]
